FAERS Safety Report 4785402-6 (Version None)
Quarter: 2005Q3

REPORT INFORMATION
  Report Type: 
  Country: None (occurrence: None)
  Receive Date: 20050929
  Receipt Date: 20050912
  Transmission Date: 20060218
  Serious: Yes (Hospitalization)
  Sender: FDA-Public Use
  Company Number: 218087

PATIENT
  Age: 70 Year
  Sex: Male
  Weight: 70.6 kg

DRUGS (8)
  1. AVASTIN [Suspect]
     Indication: COLORECTAL CANCER
     Dosage: 375 MG, Q2W, INTRAVENOUS
     Route: 042
     Dates: start: 20050607, end: 20050911
  2. IRINOTECAN HCL [Suspect]
     Indication: COLORECTAL CANCER
     Dosage: 330 MG, Q15D, INTRAVENOUS
     Route: 042
     Dates: start: 20050607
  3. FLUOROURACIL [Suspect]
     Indication: COLORECTAL CANCER
     Dosage: 400 MG, INTRAVENOUS
     Route: 042
     Dates: start: 20050607
  4. LEUCOVORIN CALCIUM [Suspect]
     Indication: COLORECTAL CANCER
     Dosage: 400 MG, INTRAVENOUS
     Route: 042
     Dates: start: 20050607
  5. DIMITONE (CARVEDILOL) [Concomitant]
  6. ASAFLOW (ASPIRIN) [Concomitant]
  7. DAFALGAN (ACETAMINOPHEN) [Concomitant]
  8. LORAMET (LORMETAZEPAM) [Concomitant]

REACTIONS (4)
  - ANAL FISTULA [None]
  - DIARRHOEA [None]
  - FUNGAL OESOPHAGITIS [None]
  - PERIANAL ABSCESS [None]
